FAERS Safety Report 4920819-8 (Version None)
Quarter: 2006Q1

REPORT INFORMATION
  Report Type: 
  Country: None (occurrence: None)
  Receive Date: 20060113
  Receipt Date: 20050921
  Transmission Date: 20060701
  Serious: No
  Sender: FDA-Public Use
  Company Number: 2005SP002973

PATIENT
  Age: 82 Year
  Sex: Female
  Weight: 54.4316 kg

DRUGS (7)
  1. LUNESTA [Suspect]
     Indication: INSOMNIA
     Dosage: 2 MG;HS;ORAL
     Route: 048
     Dates: start: 20050906, end: 20050910
  2. PLAVIX [Concomitant]
  3. TENORMIN [Concomitant]
  4. AMLODIPINE BESYLATE [Concomitant]
  5. ENTERIC ASPIRIN [Concomitant]
  6. GLUCOSAMINE W/CHONDROITIN [Concomitant]
  7. DARVOCET [Concomitant]

REACTIONS (3)
  - DRUG INEFFECTIVE [None]
  - INSOMNIA [None]
  - IRRITABILITY [None]
